FAERS Safety Report 6100966-8 (Version None)
Quarter: 2009Q1

REPORT INFORMATION
  Report Type: 
  Country: None (occurrence: None)
  Receive Date: 20090227
  Receipt Date: 20090218
  Transmission Date: 20090719
  Serious: Yes (Other)
  Sender: FDA-Public Use
  Company Number: 231404K09USA

PATIENT
  Age: 62 Year
  Sex: Female

DRUGS (4)
  1. REBIF [Suspect]
     Indication: MULTIPLE SCLEROSIS
     Dosage: 44 MCG, 3 IN 1 WEEKS, SUBCUTANEOUS
     Route: 058
     Dates: start: 20060314
  2. LEXAPRO [Concomitant]
  3. MULTI-VITAMINS [Concomitant]
  4. TYLENOL (COTYLENOL) [Concomitant]

REACTIONS (1)
  - BASEDOW'S DISEASE [None]
